FAERS Safety Report 8618462-2 (Version None)
Quarter: 2012Q3

REPORT INFORMATION
  Report Type: 
  Country: None (occurrence: None)
  Receive Date: 20120810
  Receipt Date: 20120810
  Transmission Date: 20120928
  Serious: Yes (Other)
  Sender: FDA-Public Use
  Company Number: None

PATIENT
  Age: 80 Year
  Sex: Male
  Weight: 69 kg

DRUGS (7)
  1. LEVETIRACETAM [Concomitant]
  2. LINEZOLID [Suspect]
     Indication: CELLULITIS STAPHYLOCOCCAL
     Dosage: 600 MG BID PO
     Route: 048
     Dates: start: 20120726, end: 20120802
  3. TRIMETHOPRIM + SULFAMETHOXAZOLE [Concomitant]
  4. METOPROLOL TARTRATE [Concomitant]
  5. TAMSULOSIN HCL [Concomitant]
  6. SERTRALINE HYDROCHLORIDE [Concomitant]
  7. OLANZAPINE [Concomitant]

REACTIONS (2)
  - PERSONALITY DISORDER [None]
  - AGGRESSION [None]
